FAERS Safety Report 5074915-8 (Version None)
Quarter: 2006Q3

REPORT INFORMATION
  Report Type: 
  Country: None (occurrence: None)
  Receive Date: 20060809
  Receipt Date: 20060728
  Transmission Date: 20061208
  Serious: Yes (Death, Hospitalization)
  Sender: FDA-Public Use
  Company Number: PHNU2006DE02648

PATIENT
  Sex: Male

DRUGS (3)
  1. LEPONEX [Suspect]
     Indication: SCHIZOPHRENIA
     Route: 048
     Dates: start: 20060401, end: 20060401
  2. LEPONEX [Suspect]
     Route: 048
  3. CIATYL-Z [Suspect]

REACTIONS (5)
  - CARDIAC ARREST [None]
  - CHILLS [None]
  - HEPATIC ENZYME ABNORMAL [None]
  - NEUROLEPTIC MALIGNANT SYNDROME [None]
  - PYREXIA [None]
